FAERS Safety Report 6985333-7 (Version None)
Quarter: 2010Q3

REPORT INFORMATION
  Report Type: 
  Country: None (occurrence: None)
  Receive Date: 20100915
  Receipt Date: 20100901
  Transmission Date: 20110219
  Serious: No
  Sender: FDA-Public Use
  Company Number: US-PFIZER INC-2010110861

PATIENT
  Sex: Male
  Weight: 147 kg

DRUGS (3)
  1. LYRICA [Suspect]
     Indication: DIABETIC NEUROPATHY
     Dosage: 75 MG, DAILY
     Route: 048
     Dates: start: 20100831
  2. METFORMIN [Concomitant]
     Indication: DIABETES MELLITUS
     Dosage: 1000 MG, 2X/DAY
     Route: 048
  3. AMLODIPINE BESYLATE/VALSARTAN [Concomitant]
     Indication: BLOOD PRESSURE ABNORMAL
     Dosage: [AMLODIPINE BESYLATE 10 MG]/ [VALSARTAN 160 MG] DAILY
     Route: 048

REACTIONS (3)
  - COUGH [None]
  - FEELING COLD [None]
  - INFLUENZA LIKE ILLNESS [None]
